FAERS Safety Report 20596784 (Version 2)
Quarter: 2022Q4

REPORT INFORMATION
  Report Type: Report from Study
  Country: US (occurrence: US)
  Receive Date: 20220315
  Receipt Date: 20221004
  Transmission Date: 20230113
  Serious: No
  Sender: FDA-Public Use
  Company Number: US-KYOWAKIRIN-2022BKK003316

PATIENT

DRUGS (4)
  1. CRYSVITA [Suspect]
     Active Substance: BUROSUMAB-TWZA
     Indication: Hereditary hypophosphataemic rickets
     Dosage: 70 MG, 1X/4 WEEKS (STRENGTH 10 AND 30 MG/ML COMBINED TO ACHIEVE DOSE OF 70 MG)
     Route: 058
     Dates: start: 20210824
  2. CRYSVITA [Suspect]
     Active Substance: BUROSUMAB-TWZA
     Dosage: (STRENGTH 10 AND 30 MG/ML COMBINED TO ACHIEVE DOSE OF 70 MG)70 MG, 1X/4 WEEKS
     Route: 058
     Dates: start: 20220824
  3. CRYSVITA [Suspect]
     Active Substance: BUROSUMAB-TWZA
     Indication: Hereditary hypophosphataemic rickets
     Dosage: 70 MG, 1X/4 WEEKS ( (STRENGTH 10 AND 30 MG/ML COMBINED TO ACHIEVE DOSE OF 70 MG)
     Route: 058
     Dates: start: 20210824
  4. CRYSVITA [Suspect]
     Active Substance: BUROSUMAB-TWZA
     Dosage: 70 MG, 1X/4 WEEKS (STRENGTH 10 AND 30 MG/ML COMBINED TO ACHIEVE DOSE OF 70 MG)
     Route: 058
     Dates: start: 20220824

REACTIONS (4)
  - Condition aggravated [Unknown]
  - Arthralgia [Not Recovered/Not Resolved]
  - Restless legs syndrome [Unknown]
  - Product dose omission issue [Unknown]
